FAERS Safety Report 24577775 (Version 1)
Quarter: 2024Q4

REPORT INFORMATION
  Report Type: Spontaneous
  Country: FR (occurrence: FR)
  Receive Date: 20241104
  Receipt Date: 20241104
  Transmission Date: 20250114
  Serious: Yes (Hospitalization)
  Sender: TEVA
  Company Number: None

PATIENT
  Age: 71 Year
  Sex: Female
  Weight: 52 kg

DRUGS (3)
  1. SORIATANE [Suspect]
     Active Substance: ACITRETIN
     Indication: Alopecia scarring
     Dosage: SORIATANE
     Route: 048
     Dates: start: 20231020, end: 20231110
  2. KARDEGIC [Concomitant]
     Active Substance: ASPIRIN DL-LYSINE
     Indication: Cardiovascular event prophylaxis
     Route: 048
  3. ATORVASTATIN [Concomitant]
     Active Substance: ATORVASTATIN
     Indication: Cardiovascular event prophylaxis
     Route: 048

REACTIONS (2)
  - Vestibular neuronitis [Recovered/Resolved]
  - Symptom recurrence [Recovered/Resolved]

NARRATIVE: CASE EVENT DATE: 20231110
